FAERS Safety Report 10510782 (Version 2)
Quarter: 2014Q4

REPORT INFORMATION
  Report Type: Spontaneous
  Country: US (occurrence: None)
  Receive Date: 20140926
  Receipt Date: 20141223
  Transmission Date: 20150528
  Serious: No
  Sender: FDA-Public Use
  Company Number: 1000070347

PATIENT
  Age: 88 Year
  Sex: Female

DRUGS (11)
  1. LINZESS [Suspect]
     Active Substance: LINACLOTIDE
     Indication: IRRITABLE BOWEL SYNDROME
     Dosage: 145MCG (145 MCG, 1 IN 1 D), ORAL
     Route: 048
     Dates: start: 20140826, end: 20140826
  2. NASONEX [Concomitant]
     Active Substance: MOMETASONE FUROATE
  3. LORAZEPAM. [Concomitant]
     Active Substance: LORAZEPAM
  4. LINZESS [Suspect]
     Active Substance: LINACLOTIDE
     Indication: IRRITABLE BOWEL SYNDROME
     Route: 048
     Dates: start: 20141004, end: 20141006
  5. LINZESS [Suspect]
     Active Substance: LINACLOTIDE
     Route: 048
     Dates: start: 20141006
  6. METOPROLOL ER (METOPROLOL SUCCINATE) [Concomitant]
  7. LISINOPRIL. [Concomitant]
     Active Substance: LISINOPRIL
  8. LATANOPROST. [Concomitant]
     Active Substance: LATANOPROST
  9. SUPPOSITORY NOS (SUPPOSITORY NOS) [Suspect]
     Active Substance: UNSPECIFIED INGREDIENT
     Dates: start: 20141006
  10. STOOL SOFTENER (DOCUSATE SODIUM) [Suspect]
     Active Substance: DOCUSATE SODIUM
     Dates: start: 20141005, end: 20141006
  11. PANTOPRAZOLE [Concomitant]
     Active Substance: PANTOPRAZOLE SODIUM

REACTIONS (4)
  - Expired product administered [None]
  - Off label use [None]
  - Diarrhoea [None]
  - Discomfort [None]

NARRATIVE: CASE EVENT DATE: 20140826
